FAERS Safety Report 20613675 (Version 1)
Quarter: 2022Q1

REPORT INFORMATION
  Report Type: Spontaneous
  Country: CN (occurrence: CN)
  Receive Date: 20220319
  Receipt Date: 20220319
  Transmission Date: 20220423
  Serious: Yes (Death, Hospitalization)
  Sender: FDA-Public Use
  Company Number: CN-MSNLABS-2022MSNLIT00269

PATIENT

DRUGS (2)
  1. CAPECITABINE [Suspect]
     Active Substance: CAPECITABINE
     Indication: Cholangiocarcinoma
     Route: 065
  2. APATINIB [Suspect]
     Active Substance: APATINIB
     Indication: Cholangiocarcinoma
     Route: 065

REACTIONS (1)
  - Toxic encephalopathy [Fatal]
